FAERS Safety Report 7972578-2 (Version None)
Quarter: 2011Q4

REPORT INFORMATION
  Report Type: 
  Country: None (occurrence: None)
  Receive Date: 20111209
  Receipt Date: 20111128
  Transmission Date: 20120403
  Serious: Yes (Hospitalization)
  Sender: FDA-Public Use
  Company Number: EU-2011-10152

PATIENT
  Sex: Male
  Weight: 92 kg

DRUGS (18)
  1. DIHYDROCODEINE BITARTRATE INJ [Concomitant]
  2. CYCLIZINE (CYCLIZINE) [Concomitant]
  3. ACETAMINOPHEN [Concomitant]
  4. SAMSCA [Suspect]
     Indication: INAPPROPRIATE ANTIDIURETIC HORMONE SECRETION
     Dosage: SEE IMAGE
     Route: 048
     Dates: start: 20110813, end: 20110816
  5. SAMSCA [Suspect]
     Indication: HYPONATRAEMIA
     Dosage: SEE IMAGE
     Route: 048
     Dates: start: 20110813, end: 20110816
  6. SAMSCA [Suspect]
     Indication: INAPPROPRIATE ANTIDIURETIC HORMONE SECRETION
     Dosage: SEE IMAGE
     Route: 048
     Dates: start: 20110603, end: 20110624
  7. SAMSCA [Suspect]
     Indication: HYPONATRAEMIA
     Dosage: SEE IMAGE
     Route: 048
     Dates: start: 20110603, end: 20110624
  8. SAMSCA [Suspect]
     Indication: INAPPROPRIATE ANTIDIURETIC HORMONE SECRETION
     Dosage: SEE IMAGE
     Route: 048
     Dates: start: 20110624, end: 20110711
  9. SAMSCA [Suspect]
     Indication: HYPONATRAEMIA
     Dosage: SEE IMAGE
     Route: 048
     Dates: start: 20110624, end: 20110711
  10. SAMSCA [Suspect]
     Indication: INAPPROPRIATE ANTIDIURETIC HORMONE SECRETION
     Dosage: SEE IMAGE
     Route: 048
     Dates: start: 20110817, end: 20110826
  11. SAMSCA [Suspect]
     Indication: HYPONATRAEMIA
     Dosage: SEE IMAGE
     Route: 048
     Dates: start: 20110817, end: 20110826
  12. SAMSCA [Suspect]
     Indication: INAPPROPRIATE ANTIDIURETIC HORMONE SECRETION
     Dosage: SEE IMAGE
     Route: 048
     Dates: start: 20110714, end: 20110812
  13. SAMSCA [Suspect]
     Indication: HYPONATRAEMIA
     Dosage: SEE IMAGE
     Route: 048
     Dates: start: 20110714, end: 20110812
  14. ASPIRIN [Concomitant]
  15. BISOPROLOL FUMARATE [Concomitant]
  16. METOCHLOPRAMIDE (METOCHLOPRAMIDE) [Concomitant]
  17. ENSURE (NUTRIENTS NOS) [Concomitant]
  18. DEXAMETHASONE [Concomitant]

REACTIONS (5)
  - HYPONATRAEMIA [None]
  - VOMITING [None]
  - LETHARGY [None]
  - DEHYDRATION [None]
  - DRUG INEFFECTIVE [None]
